FAERS Safety Report 5172577-2 (Version None)
Quarter: 2006Q4

REPORT INFORMATION
  Report Type: 
  Country: None (occurrence: None)
  Receive Date: 20061205
  Receipt Date: 20061127
  Transmission Date: 20070319
  Serious: Yes (Other)
  Sender: FDA-Public Use
  Company Number: 233123

PATIENT
  Sex: 0

DRUGS (1)
  1. MABTHERA (RITUXIMAB)CONC FOR SOLUITON FOR INFUSION) [Suspect]
     Indication: DRUG USE FOR UNKNOWN INDICATION

REACTIONS (2)
  - HENOCH-SCHONLEIN PURPURA [None]
  - TYPE IV HYPERSENSITIVITY REACTION [None]
